FAERS Safety Report 8553491-9 (Version None)
Quarter: 2012Q3

REPORT INFORMATION
  Report Type: 
  Country: None (occurrence: None)
  Receive Date: 20120731
  Receipt Date: 20120726
  Transmission Date: 20120928
  Serious: Yes (Hospitalization)
  Sender: FDA-Public Use
  Company Number: IT-PFIZER INC-2012162768

PATIENT
  Age: 51 Year
  Sex: Female

DRUGS (4)
  1. VINCRISTINE SULFATE [Suspect]
     Indication: NON-HODGKIN'S LYMPHOMA
     Dosage: 2 MG, CYCLIC
     Route: 042
     Dates: start: 20120412, end: 20120503
  2. CYCLOPHOSPHAMIDE [Suspect]
     Indication: NON-HODGKIN'S LYMPHOMA
     Dosage: 1100 MG, CYCLIC
     Route: 042
     Dates: start: 20120412, end: 20120503
  3. PANTOPRAZOLE [Concomitant]
     Dosage: 40 MG, UNK
  4. DOXORUBICIN HCL [Suspect]
     Indication: NON-HODGKIN'S LYMPHOMA
     Dosage: 75 MG, CYCLIC
     Route: 042
     Dates: start: 20120412, end: 20120503

REACTIONS (1)
  - SPHINGOMONAS PAUCIMOBILIS INFECTION [None]
